FAERS Safety Report 5542936-4 (Version None)
Quarter: 2007Q4

REPORT INFORMATION
  Report Type: 
  Country: None (occurrence: None)
  Receive Date: 20071207
  Receipt Date: 20071121
  Transmission Date: 20080405
  Serious: Yes (Other)
  Sender: FDA-Public Use
  Company Number: 2007US002914

PATIENT
  Sex: Male

DRUGS (1)
  1. PROGRAF [Suspect]
     Indication: DRUG USE FOR UNKNOWN INDICATION

REACTIONS (4)
  - DRUG DISPENSING ERROR [None]
  - DRUG LEVEL ABOVE THERAPEUTIC [None]
  - DRUG LEVEL FLUCTUATING [None]
  - WRONG TECHNIQUE IN DRUG USAGE PROCESS [None]
